FAERS Safety Report 5897804-5 (Version None)
Quarter: 2008Q3

REPORT INFORMATION
  Report Type: 
  Country: None (occurrence: None)
  Receive Date: 20080925
  Receipt Date: 20080924
  Transmission Date: 20090109
  Serious: Yes (Hospitalization)
  Sender: FDA-Public Use
  Company Number: FR-BRISTOL-MYERS SQUIBB COMPANY-14346118

PATIENT
  Age: 60 Year
  Sex: Female

DRUGS (1)
  1. ABILIFY [Suspect]
     Indication: SCHIZOPHRENIA
     Dosage: UNK-JUL-2008 - UNK-SEP-2008:20 MG UNK-SEP-2008 - UNK-SEP-2008:25 MG INITIATED WITH 20 MG
     Route: 048
     Dates: start: 20080901, end: 20080901

REACTIONS (5)
  - BLOOD CREATINE PHOSPHOKINASE INCREASED [None]
  - EXTRAPYRAMIDAL DISORDER [None]
  - HYPERTHERMIA [None]
  - LUNG DISORDER [None]
  - TACHYCARDIA [None]
